FAERS Safety Report 9741044 (Version 1)
Quarter: 2013Q4

REPORT INFORMATION
  Report Type: Spontaneous
  Country: US (occurrence: US)
  Receive Date: 20131209
  Receipt Date: 20131209
  Transmission Date: 20140711
  Serious: Yes (Hospitalization, Other)
  Sender: FDA-Public Use
  Company Number: US-PFIZER INC-2013351127

PATIENT
  Age: 66 Year
  Sex: Male
  Weight: 79.37 kg

DRUGS (4)
  1. LYRICA [Suspect]
     Indication: PAIN MANAGEMENT
     Dosage: UNK
     Dates: start: 2006
  2. LYRICA [Suspect]
     Dosage: 150 MG, 2X/DAY
     Dates: start: 201312
  3. ONGLYZA [Concomitant]
     Indication: TYPE 2 DIABETES MELLITUS
     Dosage: 5 MG, DAILY
  4. AZILECT [Concomitant]
     Indication: PARKINSON^S DISEASE
     Dosage: 1 MG, DAILY

REACTIONS (1)
  - Intervertebral disc disorder [Unknown]
